FAERS Safety Report 9849763 (Version 1)
Quarter: 2014Q1

REPORT INFORMATION
  Report Type: Spontaneous
  Country: US (occurrence: None)
  Receive Date: 20140124
  Receipt Date: 20140124
  Transmission Date: 20141002
  Serious: Yes (Death)
  Sender: FDA-Public Use
  Company Number: 2136010

PATIENT
  Age: 75 Year
  Sex: Female

DRUGS (3)
  1. METHYLPREDNISOLONE [Suspect]
     Indication: INTERSTITIAL LUNG DISEASE
  2. AMIODARONE [Concomitant]
  3. WARFARIN [Concomitant]

REACTIONS (2)
  - Zygomycosis [None]
  - Gastrointestinal haemorrhage [None]
